FAERS Safety Report 6366779-7 (Version None)
Quarter: 2009Q3

REPORT INFORMATION
  Report Type: 
  Country: None (occurrence: None)
  Receive Date: 20090921
  Receipt Date: 20090910
  Transmission Date: 20100115
  Serious: Yes (Other)
  Sender: FDA-Public Use
  Company Number: US-JNJFOC-20090903710

PATIENT
  Sex: Female
  Weight: 131.54 kg

DRUGS (20)
  1. REMICADE [Suspect]
     Indication: DRUG USE FOR UNKNOWN INDICATION
     Route: 042
  2. HUMIRA [Suspect]
     Indication: CROHN'S DISEASE
     Route: 050
  3. HUMIRA [Suspect]
     Indication: ANKYLOSING SPONDYLITIS
     Route: 050
  4. FENTANYL TRANSDERMAL SYSTEM [Concomitant]
     Indication: PAIN
  5. LEVOTHYROXINE SODIUM [Concomitant]
     Indication: HYPOTHYROIDISM
  6. MODAFINIL [Concomitant]
     Indication: FATIGUE
  7. PREDNISONE [Concomitant]
     Indication: ARTHRALGIA
  8. ERGOCALCIFEROL [Concomitant]
     Indication: BONE DENSITY DECREASED
  9. CELECOXIB [Concomitant]
     Indication: ARTHRALGIA
  10. PREGABALIN [Concomitant]
     Indication: PARAESTHESIA
  11. ACETYLSALICYLIC  ACID [Concomitant]
     Indication: ANTIPHOSPHOLIPID SYNDROME
  12. CITALOPRAM HYDROBROMIDE [Concomitant]
     Indication: DEPRESSION
  13. QUETIAPINE FUMARATE [Concomitant]
     Indication: SLEEP DISORDER THERAPY
  14. DULOXETINE HYDROCHLORIDE [Concomitant]
     Indication: FIBROMYALGIA
  15. PRAMIPEXOLE DIHYDROCHLORIDE [Concomitant]
     Indication: MIGRAINE
  16. TOPIRAMATE [Concomitant]
     Indication: MIGRAINE
  17. ALENDRONATE SODIUM [Concomitant]
     Indication: OSTEOPOROSIS PROPHYLAXIS
  18. RABEPRAZOLE SODIUM [Concomitant]
     Indication: DYSPEPSIA
  19. FUROSEMIDE [Concomitant]
     Indication: OEDEMA
  20. SALBUTAMOL [Concomitant]
     Indication: ASTHMA

REACTIONS (4)
  - ANTINUCLEAR ANTIBODY INCREASED [None]
  - DYSPNOEA [None]
  - INFECTION [None]
  - LUPUS-LIKE SYNDROME [None]
